FAERS Safety Report 10045938 (Version 1)
Quarter: 2014Q1

REPORT INFORMATION
  Report Type: Spontaneous
  Country: JP (occurrence: JP)
  Receive Date: 20140330
  Receipt Date: 20140330
  Transmission Date: 20141002
  Serious: Yes (Other)
  Sender: FDA-Public Use
  Company Number: JP-009507513-1403JPN013104

PATIENT
  Age: 75 Year
  Sex: 0

DRUGS (7)
  1. JANUVIA TABLETS 50MG [Suspect]
     Dosage: DAILY DOSAGE-UNKNOWN
     Route: 048
     Dates: end: 20140319
  2. ISCOTIN [Suspect]
     Dosage: DAILY DOSAGE-UNKNOWN
     Route: 065
  3. ETHAMBUTOL HYDROCHLORIDE [Suspect]
     Dosage: DAILY DOSAGE-UNKNOWN
     Route: 065
  4. RIFAMPIN [Suspect]
     Dosage: DAILY DOSAGE-UNKNOWN
     Route: 065
  5. PYRAMIDE [Suspect]
     Dosage: DAILY DOSAGE-UNKNOWN
     Route: 065
  6. MEROPENEM [Suspect]
     Dosage: DAILY DOSAGE-UNKNOWN
     Route: 065
  7. ACYCLOVIR [Suspect]
     Dosage: DAILY DOSAGE-UNKNOWN
     Route: 065

REACTIONS (1)
  - Toxic epidermal necrolysis [Recovered/Resolved]
